FAERS Safety Report 4334727-7 (Version None)
Quarter: 2004Q2

REPORT INFORMATION
  Report Type: 
  Country: None (occurrence: None)
  Receive Date: 20040407
  Receipt Date: 20040407
  Transmission Date: 20050107
  Serious: Yes (Disabling)
  Sender: FDA-Public Use
  Company Number: None

PATIENT
  Age: 59 Year
  Sex: Female
  Weight: 79.3795 kg

DRUGS (7)
  1. LIPITOR [Suspect]
     Indication: HYPERCHOLESTEROLAEMIA
     Dosage: 20 MG ONCE DAILY
     Dates: start: 20011101, end: 20040301
  2. LISINOPRIL [Concomitant]
  3. BEXTRA [Concomitant]
  4. PREMARIN [Concomitant]
  5. VITAMIN B COMPLEX CAP [Concomitant]
  6. VITAMIN E [Concomitant]
  7. VITAMIN C [Concomitant]

REACTIONS (6)
  - ARTHRALGIA [None]
  - FIBROMYALGIA [None]
  - IMPAIRED WORK ABILITY [None]
  - INFLAMMATION [None]
  - MYALGIA [None]
  - WEIGHT INCREASED [None]
